FAERS Safety Report 25024888 (Version 1)
Quarter: 2025Q1

REPORT INFORMATION
  Report Type: Report from Study
  Country: BR (occurrence: BR)
  Receive Date: 20250228
  Receipt Date: 20250228
  Transmission Date: 20250409
  Serious: Yes (Other)
  Sender: TAKEDA
  Company Number: BR-TAKEDA-BR202028289

PATIENT
  Age: 15 Year
  Sex: Male
  Weight: 64 kg

DRUGS (6)
  1. ANTI-INHIBITOR COAGULANT COMPLEX [Suspect]
     Active Substance: ANTI-INHIBITOR COAGULANT COMPLEX
     Indication: Haemophilia B with anti factor IX
  2. ANTI-INHIBITOR COAGULANT COMPLEX [Suspect]
     Active Substance: ANTI-INHIBITOR COAGULANT COMPLEX
  3. ANTI-INHIBITOR COAGULANT COMPLEX [Suspect]
     Active Substance: ANTI-INHIBITOR COAGULANT COMPLEX
  4. ANTI-INHIBITOR COAGULANT COMPLEX [Suspect]
     Active Substance: ANTI-INHIBITOR COAGULANT COMPLEX
  5. IRON POLYMALTOSE [Concomitant]
     Active Substance: IRON POLYMALTOSE
     Indication: Anaemia
  6. NOVOSEVEN [Concomitant]
     Active Substance: COAGULATION FACTOR VIIA RECOMBINANT HUMAN

REACTIONS (7)
  - Drug hypersensitivity [Unknown]
  - Hypersensitivity [Recovered/Resolved]
  - Anti factor VIII antibody increased [Unknown]
  - Haemarthrosis [Not Recovered/Not Resolved]
  - Haemorrhage [Recovered/Resolved]
  - Poor venous access [Not Recovered/Not Resolved]
  - Patient-device incompatibility [Unknown]

NARRATIVE: CASE EVENT DATE: 20200801
